FAERS Safety Report 4878506-0 (Version None)
Quarter: 2006Q1

REPORT INFORMATION
  Report Type: 
  Country: None (occurrence: None)
  Receive Date: 20060110
  Receipt Date: 20060110
  Transmission Date: 20060701
  Serious: Yes (Hospitalization)
  Sender: FDA-Public Use
  Company Number: None

PATIENT
  Age: 51 Year
  Sex: Male

DRUGS (10)
  1. ETHYOL [Suspect]
     Dosage: INTRAVENOUS; 250.0 MG
     Route: 042
     Dates: start: 20051012, end: 20051024
  2. CARBOPLATIN [Concomitant]
  3. FLUOROURACIL [Concomitant]
  4. PALENOSETRON [Concomitant]
  5. DECADRON [Concomitant]
  6. ATIVAN [Concomitant]
  7. ZANTAC [Concomitant]
  8. LOVENOX [Concomitant]
  9. COMPAZINE [Concomitant]
  10. BENADRYL [Concomitant]

REACTIONS (11)
  - ASTHENIA [None]
  - BLOOD PRESSURE DECREASED [None]
  - CHILLS [None]
  - COLD SWEAT [None]
  - DIARRHOEA [None]
  - DYSPNOEA [None]
  - FATIGUE [None]
  - HEART RATE INCREASED [None]
  - MALAISE [None]
  - PHARYNGOLARYNGEAL PAIN [None]
  - PYREXIA [None]
